FAERS Safety Report 10590217 (Version 1)
Quarter: 2014Q4

REPORT INFORMATION
  Report Type: Spontaneous
  Country: US (occurrence: US)
  Receive Date: 20141118
  Receipt Date: 20141118
  Transmission Date: 20150529
  Serious: No
  Sender: FDA-Public Use
  Company Number: US-PFIZER INC-2014315409

PATIENT
  Sex: Female

DRUGS (1)
  1. PRISTIQ EXTENDED RELEASE [Suspect]
     Active Substance: DESVENLAFAXINE SUCCINATE
     Indication: INSOMNIA
     Dosage: 50 MG, 1X/DAY (ONE CAPSULE EACH 24 HOURS IN THE EVENING)
     Route: 048

REACTIONS (1)
  - Tremor [Unknown]
